FAERS Safety Report 18982069 (Version 5)
Quarter: 2024Q3

REPORT INFORMATION
  Report Type: Spontaneous
  Country: US (occurrence: US)
  Receive Date: 20210308
  Receipt Date: 20240902
  Transmission Date: 20241017
  Serious: Yes (Hospitalization, Other)
  Sender: GLAXOSMITHKLINE
  Company Number: US-GSKCCFUS-CASE-00991461_AE-58819

PATIENT

DRUGS (1)
  1. BENLYSTA [Suspect]
     Active Substance: BELIMUMAB
     Indication: Systemic lupus erythematosus
     Dosage: 200 MG, WE
     Route: 058

REACTIONS (11)
  - Pneumonia [Recovered/Resolved]
  - Lung disorder [Recovered/Resolved]
  - Spinal nerve stimulator implantation [Unknown]
  - Urinary tract infection [Recovered/Resolved]
  - Brain fog [Unknown]
  - Ear infection [Recovered/Resolved]
  - COVID-19 [Recovered/Resolved]
  - Illness [Unknown]
  - Incorrect dose administered by product [Unknown]
  - Product dose omission issue [Not Recovered/Not Resolved]
  - Product complaint [Unknown]

NARRATIVE: CASE EVENT DATE: 20201201
